FAERS Safety Report 11760494 (Version 2)
Quarter: 2015Q4

REPORT INFORMATION
  Report Type: Spontaneous
  Country: DK (occurrence: DK)
  Receive Date: 20151120
  Receipt Date: 20151120
  Transmission Date: 20160304
  Serious: Yes (Disabling)
  Sender: FDA-Public Use
  Company Number: PHHY2015DK147891

PATIENT
  Age: 67 Year
  Sex: Female

DRUGS (5)
  1. THIAMAZOLE [Suspect]
     Active Substance: METHIMAZOLE
     Indication: HYPERTHYROIDISM
     Dosage: 5 MG, BID
     Route: 048
     Dates: start: 20150430
  2. CORODIL [Concomitant]
     Active Substance: DIPYRIDAMOLE
     Indication: HYPERTENSION
     Route: 048
     Dates: start: 20090908
  3. THIAMAZOLE [Suspect]
     Active Substance: METHIMAZOLE
     Dosage: 10 MG, UNK
     Route: 065
  4. ZARATOR//ATORVASTATIN [Concomitant]
     Indication: HYPERLIPIDAEMIA
     Route: 048
     Dates: start: 20080915
  5. EFFEXOR [Concomitant]
     Active Substance: VENLAFAXINE HYDROCHLORIDE
     Indication: DEPRESSION
     Route: 048
     Dates: start: 20030521

REACTIONS (1)
  - Visual impairment [Recovered/Resolved]

NARRATIVE: CASE EVENT DATE: 20150611
